FAERS Safety Report 14165544 (Version 1)
Quarter: 2017Q4

REPORT INFORMATION
  Report Type: Spontaneous
  Country: KR (occurrence: KR)
  Receive Date: 20171107
  Receipt Date: 20171107
  Transmission Date: 20180321
  Serious: Yes (Hospitalization)
  Sender: FDA-Public Use
  Company Number: PHHY2017KR155678

PATIENT
  Age: 58 Year
  Sex: Male

DRUGS (4)
  1. NATAMYCIN [Suspect]
     Active Substance: NATAMYCIN
     Indication: ULCERATIVE KERATITIS
     Dosage: UNK, 8QD
     Route: 065
  2. VIGAMOX [Suspect]
     Active Substance: MOXIFLOXACIN HYDROCHLORIDE
     Dosage: 8QD (ON HOSPITAL DAY 4)
     Route: 065
  3. ATROPINE SULFATE. [Suspect]
     Active Substance: ATROPINE SULFATE
     Indication: PRODUCT USED FOR UNKNOWN INDICATION
     Dosage: UNK, BID (ON HOSPITAL DAY 1)
     Route: 065
  4. VIGAMOX [Suspect]
     Active Substance: MOXIFLOXACIN HYDROCHLORIDE
     Indication: ULCERATIVE KERATITIS
     Dosage: UNK
     Route: 065

REACTIONS (3)
  - Therapy non-responder [Unknown]
  - Condition aggravated [Recovering/Resolving]
  - Ulcerative keratitis [Recovering/Resolving]
